FAERS Safety Report 6653935-3 (Version None)
Quarter: 2010Q1

REPORT INFORMATION
  Report Type: 
  Country: None (occurrence: None)
  Receive Date: 20100326
  Receipt Date: 20100316
  Transmission Date: 20100710
  Serious: Yes (Death)
  Sender: FDA-Public Use
  Company Number: IT-JNJFOC-20100206932

PATIENT
  Age: 76 Year
  Sex: Male

DRUGS (9)
  1. DOXORUBICIN HCL [Suspect]
     Indication: MULTIPLE MYELOMA
     Route: 042
  2. BORTEZOMIB [Suspect]
     Indication: MULTIPLE MYELOMA
     Route: 065
  3. DEXAMETHASONE [Suspect]
     Indication: MULTIPLE MYELOMA
     Route: 065
  4. MELPHALAN HYDROCHLORIDE [Suspect]
     Indication: TRANSPLANT
     Route: 065
  5. CYCLOPHOSPHAMIDE [Concomitant]
     Indication: HAEMATOPOIETIC STEM CELL MOBILISATION
     Route: 065
  6. GRANULOCYTE COLONY STIMULATING FACTOR [Concomitant]
     Indication: HAEMATOPOIETIC STEM CELL MOBILISATION
     Route: 065
  7. VERAPAMIL [Concomitant]
     Indication: DRUG USE FOR UNKNOWN INDICATION
     Route: 065
  8. CANDESARTAN CILEXETIL [Concomitant]
     Indication: DRUG USE FOR UNKNOWN INDICATION
     Route: 065
  9. LEVOFLOXACIN [Concomitant]
     Indication: DRUG USE FOR UNKNOWN INDICATION
     Route: 065

REACTIONS (1)
  - SEPTIC SHOCK [None]
